FAERS Safety Report 5430715-8 (Version None)
Quarter: 2007Q3

REPORT INFORMATION
  Report Type: 
  Country: None (occurrence: None)
  Receive Date: 20070830
  Receipt Date: 20061206
  Transmission Date: 20080115
  Serious: No
  Sender: FDA-Public Use
  Company Number: A0620409A

PATIENT
  Age: 34 Year
  Sex: Female

DRUGS (4)
  1. WELLBUTRIN XL [Suspect]
     Indication: DRUG USE FOR UNKNOWN INDICATION
     Dosage: 300MG PER DAY
     Route: 048
     Dates: end: 20060916
  2. ZOLOFT [Concomitant]
     Route: 048
  3. XANAX [Concomitant]
     Route: 048
  4. IMITREX [Concomitant]
     Route: 065

REACTIONS (1)
  - CLITORAL ENGORGEMENT [None]
